FAERS Safety Report 22266773 (Version 1)
Quarter: 2023Q2

REPORT INFORMATION
  Report Type: Spontaneous
  Country: US (occurrence: US)
  Receive Date: 20230428
  Receipt Date: 20230428
  Transmission Date: 20230722
  Serious: No
  Sender: FDA-Public Use
  Company Number: US-SEATTLE GENETICS-2022SGN08685

PATIENT
  Sex: Female

DRUGS (8)
  1. TUKYSA [Suspect]
     Active Substance: TUCATINIB
     Indication: Breast cancer metastatic
     Dosage: UNK
     Route: 065
     Dates: start: 20201123, end: 20230313
  2. CAPECITABINE [Suspect]
     Active Substance: CAPECITABINE
     Indication: Breast cancer metastatic
     Dosage: UNK
     Route: 065
     Dates: start: 20201123
  3. TRASTUZUMAB [Suspect]
     Active Substance: TRASTUZUMAB
     Indication: Breast cancer metastatic
     Dosage: 150 MG, Q3WEEKS
     Route: 042
     Dates: start: 20201123
  4. IMODIUM [Concomitant]
     Active Substance: LOPERAMIDE HYDROCHLORIDE
     Indication: Product used for unknown indication
     Route: 065
  5. LOMOTIL [Concomitant]
     Active Substance: ATROPINE SULFATE\DIPHENOXYLATE HYDROCHLORIDE
     Indication: Diarrhoea
     Dosage: 2.5MG - 0.025MG, BID AS NEEDED 58.1KG
     Route: 048
     Dates: start: 20210429
  6. APIXABAN [Concomitant]
     Active Substance: APIXABAN
     Dosage: 2.5 MG Q12H
     Route: 048
     Dates: start: 20200828
  7. PERFLUTREN [Concomitant]
     Active Substance: PERFLUTREN
     Dosage: 1.3ML PRN
     Route: 042
     Dates: start: 20210617
  8. PERFLUTREN [Concomitant]
     Active Substance: PERFLUTREN
     Dosage: PRN
     Route: 042
     Dates: start: 20211124

REACTIONS (7)
  - Head discomfort [Recovered/Resolved]
  - Oral discomfort [Recovered/Resolved]
  - Mucosal inflammation [Recovered/Resolved]
  - Decreased appetite [Unknown]
  - Weight decreased [Recovered/Resolved]
  - Stomatitis [Recovered/Resolved]
  - Nausea [Not Recovered/Not Resolved]
